FAERS Safety Report 8439870-9 (Version None)
Quarter: 2012Q2

REPORT INFORMATION
  Report Type: 
  Country: None (occurrence: None)
  Receive Date: 20120615
  Receipt Date: 20120612
  Transmission Date: 20120825
  Serious: Yes (Other)
  Sender: FDA-Public Use
  Company Number: PHHY2011BR70233

PATIENT
  Age: 60 Year
  Sex: Male

DRUGS (5)
  1. REFLOXAL [Suspect]
     Indication: HYPERTENSION
     Dosage: UNK UKN, UNK
  2. RASILEZ [Suspect]
     Indication: KIDNEY INFECTION
     Dosage: 1 DF, QD
  3. INDAPAMIDE [Suspect]
     Indication: HYPERTENSION
     Dosage: UNK UKN, UNK
  4. ASPIRIN [Suspect]
     Dosage: 81 MG, UNK
  5. ENALAPRIL MALEATE [Suspect]
     Indication: HYPERTENSION
     Dosage: UNK UKN, UNK

REACTIONS (8)
  - BONE DISORDER [None]
  - HEAD DISCOMFORT [None]
  - CARDIAC DISCOMFORT [None]
  - ABDOMINAL PAIN UPPER [None]
  - GASTROINTESTINAL DISORDER [None]
  - MALAISE [None]
  - DIABETES MELLITUS [None]
  - SCIATICA [None]
